FAERS Safety Report 13690675 (Version 2)
Quarter: 2017Q3

REPORT INFORMATION
  Report Type: Spontaneous
  Country: SE (occurrence: SE)
  Receive Date: 20170626
  Receipt Date: 20170829
  Transmission Date: 20171127
  Serious: Yes (Hospitalization, Other)
  Sender: FDA-Public Use
  Company Number: SE-GLAXOSMITHKLINE-SE2017GSK097135

PATIENT
  Age: 59 Year
  Sex: Male
  Weight: 70 kg

DRUGS (6)
  1. KININE [Concomitant]
  2. EFAVIRENZ [Concomitant]
     Active Substance: EFAVIRENZ
  3. PARACETAMOL [Concomitant]
     Active Substance: ACETAMINOPHEN
  4. VOLTAREN [Suspect]
     Active Substance: DICLOFENAC SODIUM
     Indication: PRODUCT USED FOR UNKNOWN INDICATION
     Dosage: UNK, TAKING 2 TABLETS OF VOLTAREN FOR TWO DAYS
  5. VOLTAREN [Suspect]
     Active Substance: DICLOFENAC SODIUM
     Indication: PRODUCT USED FOR UNKNOWN INDICATION
     Dosage: UNK
  6. ABACAVIR + LAMIVUDINE [Concomitant]
     Active Substance: ABACAVIR\LAMIVUDINE

REACTIONS (11)
  - Restlessness [Recovered/Resolved]
  - Meningoencephalitis viral [Unknown]
  - Disorientation [Recovered/Resolved]
  - Amnesia [Unknown]
  - Loss of consciousness [Recovered/Resolved]
  - Confusional state [Unknown]
  - Cough [Unknown]
  - Headache [Unknown]
  - Abnormal behaviour [Unknown]
  - Loss of personal independence in daily activities [Unknown]
  - CD4 lymphocytes decreased [Unknown]

NARRATIVE: CASE EVENT DATE: 200705
